FAERS Safety Report 6433408-3 (Version None)
Quarter: 2009Q4

REPORT INFORMATION
  Report Type: 
  Country: None (occurrence: None)
  Receive Date: 20091106
  Receipt Date: 20091106
  Transmission Date: 20100525
  Serious: Yes (Other)
  Sender: FDA-Public Use
  Company Number: None

PATIENT
  Age: 11 Year
  Sex: Male
  Weight: 27.2158 kg

DRUGS (1)
  1. VYVANSE [Suspect]
     Indication: ATTENTION DEFICIT/HYPERACTIVITY DISORDER
     Dosage: 40 MG CAPSULES DAILY PO
     Route: 048
     Dates: start: 20090704, end: 20091104

REACTIONS (4)
  - AGGRESSION [None]
  - PERSONALITY CHANGE [None]
  - RESTLESSNESS [None]
  - SLEEP DISORDER [None]
